FAERS Safety Report 4716842-9 (Version None)
Quarter: 2005Q3

REPORT INFORMATION
  Report Type: 
  Country: None (occurrence: None)
  Receive Date: 20050719
  Receipt Date: 20050708
  Transmission Date: 20060218
  Serious: Yes (Death)
  Sender: FDA-Public Use
  Company Number: CA-JNJFOC-20050701665

PATIENT
  Age: 42 Year
  Sex: Male

DRUGS (8)
  1. TOPAMAX [Suspect]
     Indication: AFFECTIVE DISORDER
     Route: 065
  2. RISPERDAL [Concomitant]
     Indication: DRUG USE FOR UNKNOWN INDICATION
     Route: 065
  3. CLONAZEPAM [Concomitant]
  4. OLANZAPINE [Concomitant]
  5. VALPROIC ACID [Concomitant]
  6. RANITIDINE [Concomitant]
  7. METFORMIN HCL [Concomitant]
  8. CRESTOR [Concomitant]

REACTIONS (2)
  - DEATH [None]
  - NEPHROLITHIASIS [None]
